FAERS Safety Report 13299658 (Version 2)
Quarter: 2017Q3

REPORT INFORMATION
  Report Type: Report from Study
  Country: GB (occurrence: GB)
  Receive Date: 20170306
  Receipt Date: 20170915
  Transmission Date: 20171127
  Serious: Yes (Other)
  Sender: FDA-Public Use
  Company Number: GB-VERTEX PHARMACEUTICALS-2017-001121

PATIENT
  Age: 49 Year
  Sex: Female
  Weight: 76 kg

DRUGS (8)
  1. TERBUTALINE [Concomitant]
     Active Substance: TERBUTALINE
     Indication: CYSTIC FIBROSIS LUNG
     Dosage: 500 ?G, PRN
     Route: 055
     Dates: start: 20090612
  2. VX-770/VX-661 [Suspect]
     Active Substance: INVESTIGATIONAL PRODUCT
     Indication: CYSTIC FIBROSIS
     Dosage: 150 MG, BID
     Route: 048
     Dates: start: 20170104
  3. COLOBREATHE [Concomitant]
     Active Substance: COLISTIMETHATE SODIUM
     Indication: CYSTIC FIBROSIS LUNG
     Dosage: 5000 UT, BID
     Route: 055
     Dates: start: 20151216
  4. FEMOSTON [Concomitant]
     Active Substance: DYDROGESTERONE\ESTRADIOL
     Indication: MENOPAUSE
     Dosage: 1/10 MG, QD
     Route: 048
     Dates: start: 20170623
  5. SYMBICORT [Concomitant]
     Active Substance: BUDESONIDE\FORMOTEROL FUMARATE DIHYDRATE
     Indication: CYSTIC FIBROSIS LUNG
     Dosage: 200/6 MCG, BID
     Route: 055
     Dates: start: 20090612
  6. PARACETAMOL [Concomitant]
     Active Substance: ACETAMINOPHEN
     Indication: ANALGESIC THERAPY
     Dosage: 1 G, PRN
     Route: 048
     Dates: start: 20100621
  7. VX-661/VX-770 [Suspect]
     Active Substance: INVESTIGATIONAL PRODUCT
     Indication: CYSTIC FIBROSIS
     Dosage: 100 MG, QD
     Route: 048
     Dates: start: 20170104
  8. CHOLECALCIFEROL [Concomitant]
     Active Substance: CHOLECALCIFEROL
     Dosage: 2000 UT, QD
     Route: 048
     Dates: start: 20120528

REACTIONS (1)
  - Anxiety [Recovered/Resolved]

NARRATIVE: CASE EVENT DATE: 20170220
